FAERS Safety Report 16003993 (Version 2)
Quarter: 2021Q2

REPORT INFORMATION
  Report Type: Spontaneous
  Country: US (occurrence: US)
  Receive Date: 20190226
  Receipt Date: 20210508
  Transmission Date: 20210716
  Serious: No
  Sender: FDA-Public Use
  Company Number: US-AMGEN-USASP2019029598

PATIENT
  Sex: Female

DRUGS (2)
  1. MTX [Suspect]
     Active Substance: METHOTREXATE SODIUM
     Indication: PRODUCT USED FOR UNKNOWN INDICATION
     Dosage: UNK
     Route: 065
  2. ENBREL [Suspect]
     Active Substance: ETANERCEPT
     Indication: PRODUCT USED FOR UNKNOWN INDICATION
     Dosage: UNK
     Route: 065

REACTIONS (3)
  - Drug intolerance [Unknown]
  - Dizziness [Unknown]
  - Drug hypersensitivity [Unknown]
